FAERS Safety Report 14447650 (Version 2)
Quarter: 2019Q1

REPORT INFORMATION
  Report Type: Spontaneous
  Country: US (occurrence: US)
  Receive Date: 20180126
  Receipt Date: 20190204
  Transmission Date: 20190417
  Serious: No
  Sender: FDA-Public Use
  Company Number: US-ABBVIE-17K-163-1835076-00

PATIENT
  Sex: Female

DRUGS (1)
  1. HUMIRA [Suspect]
     Active Substance: ADALIMUMAB
     Indication: HIDRADENITIS
     Route: 058

REACTIONS (10)
  - Pruritus [Unknown]
  - Hidradenitis [Recovering/Resolving]
  - Furuncle [Unknown]
  - Musculoskeletal stiffness [Unknown]
  - Eczema [Unknown]
  - Hidradenitis [Recovered/Resolved]
  - Pyrexia [Unknown]
  - Dehydration [Recovering/Resolving]
  - Rash [Unknown]
  - Headache [Unknown]

NARRATIVE: CASE EVENT DATE: 2016
